FAERS Safety Report 9339066 (Version 1)
Quarter: 2013Q3

REPORT INFORMATION
  Report Type: Spontaneous
  Country: US (occurrence: None)
  Receive Date: 20130606
  Receipt Date: 20130606
  Transmission Date: 20140515
  Serious: Yes (Hospitalization)
  Sender: FDA-Public Use
  Company Number: None

PATIENT
  Age: 68 Year
  Sex: Male
  Weight: 99.43 kg

DRUGS (1)
  1. VELCADE [Suspect]

REACTIONS (7)
  - Asthenia [None]
  - Fatigue [None]
  - Fall [None]
  - Cough [None]
  - Dyspnoea [None]
  - Diarrhoea [None]
  - Fluid overload [None]
